FAERS Safety Report 10218255 (Version 1)
Quarter: 2014Q2

REPORT INFORMATION
  Report Type: Spontaneous
  Country: CA (occurrence: CA)
  Receive Date: 20140605
  Receipt Date: 20140605
  Transmission Date: 20141212
  Serious: Yes (Other)
  Sender: FDA-Public Use
  Company Number: CA-ROCHE-1412454

PATIENT
  Age: 71 Year
  Sex: Male

DRUGS (7)
  1. XOLAIR [Suspect]
     Indication: ASTHMA
     Route: 058
     Dates: start: 20120822
  2. XOLAIR [Suspect]
     Route: 058
     Dates: start: 20121005
  3. XOLAIR [Suspect]
     Route: 058
     Dates: start: 20140523
  4. ADVAIR [Concomitant]
  5. ALVESCO [Concomitant]
  6. ATROVENT [Concomitant]
  7. VENTOLIN [Concomitant]

REACTIONS (13)
  - Deafness [Not Recovered/Not Resolved]
  - Haematochezia [Unknown]
  - Sluggishness [Unknown]
  - Oedema peripheral [Unknown]
  - Respiratory tract congestion [Unknown]
  - Ear congestion [Unknown]
  - Nasal congestion [Unknown]
  - Insomnia [Unknown]
  - Ear infection [Not Recovered/Not Resolved]
  - Blood pressure increased [Unknown]
  - Arthralgia [Not Recovered/Not Resolved]
  - Joint swelling [Not Recovered/Not Resolved]
  - Fatigue [Unknown]
